FAERS Safety Report 26063175 (Version 2)
Quarter: 2025Q4

REPORT INFORMATION
  Report Type: Other
  Country: EU (occurrence: EU)
  Receive Date: 20251119
  Receipt Date: 20251204
  Transmission Date: 20260118
  Serious: Yes (Death, Other)
  Sender: APPCO PHARMA LLC
  Company Number: EU-Appco Pharma LLC-2188865

PATIENT
  Age: 28 Year
  Sex: Male

DRUGS (4)
  1. HALOPERIDOL [Suspect]
     Active Substance: HALOPERIDOL
     Indication: Schizophrenia
  2. CLOTHIAPINE [Suspect]
     Active Substance: CLOTHIAPINE
  3. PROMAZINE [Suspect]
     Active Substance: PROMAZINE
  4. PALIPERIDONE [Suspect]
     Active Substance: PALIPERIDONE

REACTIONS (6)
  - Sudden cardiac death [Fatal]
  - Pulmonary oedema [Fatal]
  - Haematotoxicity [Fatal]
  - Arteriosclerosis coronary artery [Fatal]
  - Left ventricular hypertrophy [Fatal]
  - Toxicity to various agents [Fatal]
